FAERS Safety Report 14214456 (Version 1)
Quarter: 2017Q4

REPORT INFORMATION
  Report Type: Spontaneous
  Country: US (occurrence: US)
  Receive Date: 20171122
  Receipt Date: 20171122
  Transmission Date: 20180321
  Serious: No
  Sender: FDA-Public Use
  Company Number: US-PFIZER INC-2017483193

PATIENT
  Age: 65 Year
  Sex: Male
  Weight: 113.38 kg

DRUGS (5)
  1. LYRICA [Suspect]
     Active Substance: PREGABALIN
     Indication: NEURALGIA
  2. EPITOL [Concomitant]
     Active Substance: CARBAMAZEPINE
     Indication: SEIZURE
     Dosage: 200 MG, 3X/DAY
     Route: 048
  3. LEVETIRACETAM. [Concomitant]
     Active Substance: LEVETIRACETAM
     Indication: SEIZURE
     Dosage: 500 MG, 2X/DAY; [500 MG BIG TABLETS]
  4. LYRICA [Suspect]
     Active Substance: PREGABALIN
     Indication: PAIN
     Dosage: 75 MG, 2X/DAY
  5. HYDROMORPHONE [Concomitant]
     Active Substance: HYDROMORPHONE
     Indication: PAIN
     Dosage: 4 MG, AS NEEDED; [TAKES 4 TIMES DAILY AS NEEDED. SOMETIMES HE TAKES 3]

REACTIONS (1)
  - Drug ineffective [Unknown]
